FAERS Safety Report 10947421 (Version 2)
Quarter: 2015Q1

REPORT INFORMATION
  Report Type: Spontaneous
  Country: US (occurrence: US)
  Receive Date: 20150323
  Receipt Date: 20150330
  Transmission Date: 20150721
  Serious: Yes (Hospitalization)
  Sender: FDA-Public Use
  Company Number: US-CELGENEUS-USA-2015032844

PATIENT
  Sex: Female

DRUGS (2)
  1. REVLIMID [Suspect]
     Active Substance: LENALIDOMIDE
     Indication: MYELODYSPLASTIC SYNDROME
     Route: 048
     Dates: start: 20150228
  2. REVLIMID [Suspect]
     Active Substance: LENALIDOMIDE
     Dosage: CAPSULES TO BE OPENED AND TO BE GIVEN VIA FEEDING TUBE
     Route: 048
     Dates: start: 20150311

REACTIONS (2)
  - Decreased appetite [Unknown]
  - Urinary tract infection [Unknown]
